FAERS Safety Report 21302792 (Version 1)
Quarter: 2022Q3

REPORT INFORMATION
  Report Type: Spontaneous
  Country: US (occurrence: None)
  Receive Date: 20220907
  Receipt Date: 20220907
  Transmission Date: 20221027
  Serious: Yes (Hospitalization)
  Sender: FDA-Public Use
  Company Number: None

PATIENT
  Age: 26 Year
  Sex: Male
  Weight: 115.9 kg

DRUGS (3)
  1. CYTARABINE [Suspect]
     Active Substance: CYTARABINE
     Dosage: OTHER QUANTITY : 6000 MCMOL;?
     Dates: end: 20220810
  2. SPRYCEL [Suspect]
     Active Substance: DASATINIB
     Dates: end: 20220814
  3. METHOTREXATE [Suspect]
     Active Substance: METHOTREXATE
     Dosage: OTHER QUANTITY : 1012.5 MCMOL;?
     Dates: end: 20220808

REACTIONS (3)
  - Febrile neutropenia [None]
  - Haemoglobin decreased [None]
  - Platelet count decreased [None]

NARRATIVE: CASE EVENT DATE: 20220815
